FAERS Safety Report 8044883-5 (Version None)
Quarter: 2012Q1

REPORT INFORMATION
  Report Type: 
  Country: None (occurrence: None)
  Receive Date: 20120113
  Receipt Date: 20120106
  Transmission Date: 20120608
  Serious: Yes (Hospitalization)
  Sender: FDA-Public Use
  Company Number: US-ACTELION-A-US2011-55626

PATIENT

DRUGS (3)
  1. VIAGRA [Concomitant]
  2. CALCIUM CHANNEL BLOCKERS [Concomitant]
  3. TRACLEER [Suspect]
     Indication: PULMONARY ARTERIAL HYPERTENSION
     Dosage: UNK
     Route: 048
     Dates: start: 20090309

REACTIONS (6)
  - KIDNEY INFECTION [None]
  - NERVOUSNESS [None]
  - PANIC ATTACK [None]
  - PNEUMONIA [None]
  - ANAEMIA [None]
  - DYSPNOEA [None]
